FAERS Safety Report 6460273-0 (Version None)
Quarter: 2009Q4

REPORT INFORMATION
  Report Type: 
  Country: None (occurrence: None)
  Receive Date: 20091130
  Receipt Date: 20091117
  Transmission Date: 20100525
  Serious: Yes (Hospitalization)
  Sender: FDA-Public Use
  Company Number: PHHY2009FR51393

PATIENT
  Sex: Male

DRUGS (5)
  1. VOLTAREN [Suspect]
     Indication: BACK PAIN
     Dosage: 75 MG, QD
     Route: 048
     Dates: start: 20091023, end: 20091027
  2. TEGRETOL [Concomitant]
     Indication: EPILEPSY
     Dosage: 300 MG, BID
     Route: 048
  3. DEPAKINE CHRONO [Concomitant]
     Indication: EPILEPSY
     Dosage: 750 MG, BID
  4. CODOLIPRANE [Concomitant]
     Indication: BACK PAIN
     Dosage: 1 DF DAILY
     Dates: start: 20091021, end: 20091027
  5. METHOCARBAMOL [Concomitant]
     Indication: BACK PAIN
     Dosage: 1000 MG, QD
     Dates: start: 20091021, end: 20091027

REACTIONS (5)
  - ABDOMINAL PAIN [None]
  - COLITIS [None]
  - COLITIS ULCERATIVE [None]
  - GASTROENTERITIS [None]
  - RECTAL HAEMORRHAGE [None]
